FAERS Safety Report 14933001 (Version 1)
Quarter: 2018Q2

REPORT INFORMATION
  Report Type: Spontaneous
  Country: US (occurrence: US)
  Receive Date: 20180504
  Receipt Date: 20180504
  Transmission Date: 20180711
  Serious: No
  Sender: FDA-Public Use
  Company Number: None

PATIENT
  Sex: Male

DRUGS (1)
  1. OTREXUP [Suspect]
     Active Substance: METHOTREXATE
     Indication: RHEUMATOID ARTHRITIS
     Route: 058
     Dates: start: 201803

REACTIONS (7)
  - Asthenia [None]
  - Skin tightness [None]
  - Injection site swelling [None]
  - Nasopharyngitis [None]
  - Dyspnoea [None]
  - Injection site reaction [None]
  - Pulmonary congestion [None]
